FAERS Safety Report 7815139-8 (Version None)
Quarter: 2011Q4

REPORT INFORMATION
  Report Type: 
  Country: None (occurrence: None)
  Receive Date: 20111014
  Receipt Date: 20111014
  Transmission Date: 20120403
  Serious: Yes (Life-Threatening, Other)
  Sender: FDA-Public Use
  Company Number: None

PATIENT
  Age: 63 Year
  Sex: Male
  Weight: 72.574 kg

DRUGS (1)
  1. LIPITOR [Suspect]

REACTIONS (8)
  - TACHYCARDIA [None]
  - TACHYARRHYTHMIA [None]
  - MYOPATHY [None]
  - MUSCLE SPASMS [None]
  - DIZZINESS [None]
  - GASTROINTESTINAL DISORDER [None]
  - BLOOD PRESSURE INCREASED [None]
  - DYSPNOEA [None]
